FAERS Safety Report 20335646 (Version 3)
Quarter: 2022Q3

REPORT INFORMATION
  Report Type: Report from Study
  Country: US (occurrence: US)
  Receive Date: 20220114
  Receipt Date: 20220630
  Transmission Date: 20221027
  Serious: No
  Sender: FDA-Public Use
  Company Number: US-NOVARTISTESTPH-NVSC2022US007201

PATIENT
  Age: 66 Year
  Sex: Female

DRUGS (2)
  1. PIQRAY [Suspect]
     Active Substance: ALPELISIB
     Indication: Product used for unknown indication
     Dosage: UNK
     Route: 048
  2. PIQRAY [Suspect]
     Active Substance: ALPELISIB
     Dosage: 250 MG, QD
     Route: 048
     Dates: start: 20220125

REACTIONS (10)
  - Skin exfoliation [Unknown]
  - Sensitive skin [Unknown]
  - Skin disorder [Unknown]
  - Product outer packaging issue [Unknown]
  - Rash [Unknown]
  - Blood glucose increased [Unknown]
  - Diarrhoea [Unknown]
  - Weight decreased [Unknown]
  - Alopecia [Unknown]
  - Blister [Unknown]

NARRATIVE: CASE EVENT DATE: 20220401
